FAERS Safety Report 7690850-0 (Version None)
Quarter: 2011Q3

REPORT INFORMATION
  Report Type: 
  Country: None (occurrence: None)
  Receive Date: 20110818
  Receipt Date: 20110813
  Transmission Date: 20111222
  Serious: Yes (Other)
  Sender: FDA-Public Use
  Company Number: US-PFIZER INC-2011182836

PATIENT
  Sex: Male
  Weight: 82 kg

DRUGS (14)
  1. CRESTOR [Concomitant]
     Indication: BLOOD CHOLESTEROL INCREASED
     Dosage: 10 MG, UNK
  2. FISH OIL [Concomitant]
     Dosage: 1000 MG, DAILY
  3. REQUIP [Concomitant]
     Indication: PARKINSON'S DISEASE
     Dosage: 2 MG, DAILY AT NIGHT
  4. PRIMIDONE [Concomitant]
     Indication: PARKINSON'S DISEASE
     Dosage: 250 MG, 2X/DAY
  5. TAMSULOSIN [Concomitant]
     Indication: PROSTATIC DISORDER
     Dosage: 0.04 MG, DAILY
  6. ACETYLSALICYLIC ACID [Concomitant]
     Dosage: 325 MG, DAILY
  7. ZYPREXA [Concomitant]
     Indication: BIPOLAR I DISORDER
     Dosage: 30 MG, DAILY
  8. FINASTERIDE [Concomitant]
     Indication: PROSTATIC DISORDER
     Dosage: 5 MG, DAILY
  9. ACETYLSALICYLIC ACID [Concomitant]
     Dosage: 325 MG, DAILY AT NIGHT
  10. GABAPENTIN [Concomitant]
     Indication: BIPOLAR I DISORDER
     Dosage: 300 MG, 4X/DAY
  11. VARENICLINE TARTRATE [Suspect]
     Indication: SMOKING CESSATION THERAPY
     Dosage: 5 MG, DAILY
     Dates: start: 20090101
  12. VARENICLINE TARTRATE [Suspect]
     Dosage: UNK
     Dates: start: 20110101
  13. PLAVIX [Suspect]
     Indication: ANTICOAGULANT THERAPY
     Dosage: 75 MG, DAILY
  14. TRICOR [Concomitant]
     Indication: BLOOD CHOLESTEROL INCREASED
     Dosage: 145 MG, UNK

REACTIONS (4)
  - ANAEMIA [None]
  - RECTAL HAEMORRHAGE [None]
  - TREMOR [None]
  - HAEMORRHOIDS [None]
